FAERS Safety Report 24270906 (Version 1)
Quarter: 2024Q3

REPORT INFORMATION
  Report Type: Report from Study
  Country: US (occurrence: US)
  Receive Date: 20240831
  Receipt Date: 20240831
  Transmission Date: 20241016
  Serious: Yes (Hospitalization, Other)
  Sender: ABBVIE
  Company Number: US-ABBVIE-5899855

PATIENT
  Sex: Male

DRUGS (1)
  1. HUMIRA [Suspect]
     Active Substance: ADALIMUMAB
     Indication: Rheumatoid arthritis
     Route: 058
     Dates: start: 20240618, end: 20240716

REACTIONS (3)
  - Septic shock [Unknown]
  - Pneumonia [Recovering/Resolving]
  - T-lymphocyte count decreased [Unknown]

NARRATIVE: CASE EVENT DATE: 20240101
